FAERS Safety Report 5442333-6 (Version None)
Quarter: 2007Q3

REPORT INFORMATION
  Report Type: 
  Country: None (occurrence: None)
  Receive Date: 20070904
  Receipt Date: 20070827
  Transmission Date: 20080115
  Serious: Yes (Death, Hospitalization)
  Sender: FDA-Public Use
  Company Number: IT-PFIZER INC-2007071371

PATIENT
  Sex: Male
  Weight: 60 kg

DRUGS (1)
  1. SU-011,248 [Suspect]
     Route: 048
     Dates: start: 20060922, end: 20070625

REACTIONS (2)
  - DEATH [None]
  - RECTAL HAEMORRHAGE [None]
